FAERS Safety Report 7452429-5 (Version None)
Quarter: 2011Q2

REPORT INFORMATION
  Report Type: 
  Country: None (occurrence: None)
  Receive Date: 20110502
  Receipt Date: 20100923
  Transmission Date: 20111010
  Serious: No
  Sender: FDA-Public Use
  Company Number: US-ASTRAZENECA-2010SE44850

PATIENT
  Age: 73 Year
  Sex: Female

DRUGS (2)
  1. NEXIUM [Suspect]
     Route: 048
     Dates: start: 20020101
  2. NEXIUM [Suspect]
     Dosage: 20 MG DAILY WITH ADDITION OF 20 MG PRN
     Route: 048
     Dates: start: 20100101

REACTIONS (2)
  - BLOOD GASTRIN INCREASED [None]
  - GASTROINTESTINAL TRACT IRRITATION [None]
